FAERS Safety Report 16322664 (Version 1)
Quarter: 2019Q2

REPORT INFORMATION
  Report Type: Spontaneous
  Country: US (occurrence: US)
  Receive Date: 20190516
  Receipt Date: 20190516
  Transmission Date: 20190711
  Serious: Yes (Other)
  Sender: FDA-Public Use
  Company Number: PHEH2019US020562

PATIENT
  Sex: Male

DRUGS (4)
  1. CARBOPLATIN. [Suspect]
     Active Substance: CARBOPLATIN
     Dosage: UNK UNK, CYCLIC (4 CYCLES COMPLETED)
     Route: 065
     Dates: start: 20190315
  2. TAXOL [Suspect]
     Active Substance: PACLITAXEL
     Indication: ANAPLASTIC THYROID CANCER
     Dosage: UNK UNK, CYCLIC
     Route: 065
  3. CARBOPLATIN. [Suspect]
     Active Substance: CARBOPLATIN
     Indication: ANAPLASTIC THYROID CANCER
     Dosage: UNK UNK, CYCLIC
     Route: 065
  4. TAXOL [Suspect]
     Active Substance: PACLITAXEL
     Dosage: UNK UNK, CYCLIC (4 CYCLES COMPLETED)
     Route: 065
     Dates: start: 20190315

REACTIONS (1)
  - Malignant neoplasm progression [Recovering/Resolving]
